FAERS Safety Report 5223615-X (Version None)
Quarter: 2007Q1

REPORT INFORMATION
  Report Type: 
  Country: None (occurrence: None)
  Receive Date: 20070130
  Receipt Date: 20070125
  Transmission Date: 20070707
  Serious: Yes (Hospitalization)
  Sender: FDA-Public Use
  Company Number: US-RB-004951-07

PATIENT

DRUGS (3)
  1. SUBUTEX [Suspect]
     Dosage: RECEIVED VIA MOTHER DURING PREGNANCY
     Dates: start: 20060705, end: 20061214
  2. SUBUTEX [Suspect]
     Dosage: RECEIVED VIA MOTHER DURING LACTATION
     Dates: start: 20061216
  3. MORPHINE [Concomitant]
     Indication: DRUG WITHDRAWAL SYNDROME NEONATAL
     Dosage: DOSAGE UNKNOWN
     Route: 048
     Dates: start: 20061214, end: 20061216

REACTIONS (5)
  - DRUG EXPOSURE DURING PREGNANCY [None]
  - DRUG EXPOSURE VIA BREAST MILK [None]
  - DRUG WITHDRAWAL SYNDROME NEONATAL [None]
  - FOETAL GROWTH RETARDATION [None]
  - NO ADVERSE EFFECT [None]
